FAERS Safety Report 6532054-0 (Version None)
Quarter: 2010Q1

REPORT INFORMATION
  Report Type: 
  Country: None (occurrence: None)
  Receive Date: 20100107
  Receipt Date: 20100107
  Transmission Date: 20100710
  Serious: Yes (Hospitalization)
  Sender: FDA-Public Use
  Company Number: None

PATIENT
  Sex: Female
  Weight: 111.6 kg

DRUGS (15)
  1. INTRON A [Suspect]
     Dosage: 860 MU
  2. INTRON A [Suspect]
  3. INTRON A [Suspect]
  4. ACETAMINOPHEN [Concomitant]
  5. ALOXI [Concomitant]
  6. ASPIRIN [Concomitant]
  7. ATIVAN [Concomitant]
  8. CIPRO [Concomitant]
  9. COMPAZINE [Concomitant]
  10. DIPHENHYDRAMIKNE [Concomitant]
  11. LANTUS [Concomitant]
  12. LISINOPRIL [Concomitant]
  13. MULTI-VITAMIN [Concomitant]
  14. NOVOLOG [Concomitant]
  15. ROCEPHIN [Concomitant]

REACTIONS (2)
  - PLEURAL EFFUSION [None]
  - URINARY TRACT INFECTION [None]
